FAERS Safety Report 4316514-9 (Version None)
Quarter: 2004Q1

REPORT INFORMATION
  Report Type: 
  Country: None (occurrence: None)
  Receive Date: 20040312
  Receipt Date: 20030407
  Transmission Date: 20041129
  Serious: Yes (Hospitalization, Disabling, Other)
  Sender: FDA-Public Use
  Company Number: WAES 0304USA00739

PATIENT
  Age: 62 Year
  Sex: Female
  Weight: 62 kg

DRUGS (16)
  1. AMITRIPTYLINE HYDROCHLORIDE [Concomitant]
     Indication: GENERALISED ANXIETY DISORDER
     Dates: start: 19990101, end: 20010101
  2. ROCALTROL [Concomitant]
     Route: 048
  3. OS-CAL + D [Concomitant]
  4. VALIUM [Concomitant]
  5. SYNTHROID [Concomitant]
  6. SYNTHROID [Concomitant]
     Route: 048
     Dates: start: 20010401
  7. CLARITIN [Concomitant]
  8. MAGNESIUM SULFATE [Concomitant]
  9. REGLAN [Concomitant]
  10. REGLAN [Concomitant]
  11. PRILOSEC [Concomitant]
  12. DITROPAN XL [Concomitant]
  13. POTASSIUM CHLORIDE [Concomitant]
  14. VIOXX [Suspect]
     Indication: PAIN
     Route: 048
     Dates: start: 20000918, end: 20010501
  15. VIOXX [Suspect]
     Indication: LOCALISED OSTEOARTHRITIS
     Route: 048
     Dates: start: 20000918, end: 20010501
  16. AMBIEN [Concomitant]

REACTIONS (78)
  - AMAUROSIS FUGAX [None]
  - AMNESIA [None]
  - ANAEMIA HAEMOLYTIC AUTOIMMUNE [None]
  - ANXIETY [None]
  - AORTIC VALVE INCOMPETENCE [None]
  - ARTHRALGIA [None]
  - ATELECTASIS [None]
  - BLINDNESS TRANSIENT [None]
  - BLOOD CHOLESTEROL INCREASED [None]
  - BLOOD CREATINE PHOSPHOKINASE INCREASED [None]
  - BLOOD PRESSURE DECREASED [None]
  - CELLULITIS [None]
  - CEREBRAL ATROPHY [None]
  - CEREBROVASCULAR ACCIDENT [None]
  - CHEST PAIN [None]
  - CHOLECYSTITIS [None]
  - CHOLELITHIASIS [None]
  - COAGULATION FACTOR VIII LEVEL INCREASED [None]
  - COUGH [None]
  - CYSTOCELE [None]
  - DECREASED APPETITE [None]
  - DIPLOPIA [None]
  - DISEASE RECURRENCE [None]
  - DISTURBANCE IN ATTENTION [None]
  - DRUG HYPERSENSITIVITY [None]
  - DRUG INEFFECTIVE [None]
  - DYSPEPSIA [None]
  - DYSPHAGIA [None]
  - DYSPNOEA [None]
  - EMOTIONAL DISTRESS [None]
  - ENDOCRINE DISORDER [None]
  - EYE PAIN [None]
  - FACE OEDEMA [None]
  - HAEMATOCHEZIA [None]
  - HAEMORRHAGE [None]
  - HIGH DENSITY LIPOPROTEIN DECREASED [None]
  - HYPERCALCAEMIA [None]
  - HYPERGLYCAEMIA [None]
  - HYPOCALCAEMIA [None]
  - HYPOMAGNESAEMIA [None]
  - HYPOPARATHYROIDISM [None]
  - HYPOTHYROIDISM [None]
  - INCREASED APPETITE [None]
  - INJURY [None]
  - IRON DEFICIENCY [None]
  - JOINT SWELLING [None]
  - LEUKOCYTOSIS [None]
  - LOW DENSITY LIPOPROTEIN INCREASED [None]
  - LUNG NEOPLASM [None]
  - MENOPAUSE [None]
  - MENTAL STATUS CHANGES [None]
  - MITRAL VALVE INCOMPETENCE [None]
  - MUCOSAL DRYNESS [None]
  - MUSCLE CRAMP [None]
  - MUSCLE TWITCHING [None]
  - MUSCULOSKELETAL STIFFNESS [None]
  - NEUROGENIC BLADDER [None]
  - OESOPHAGEAL DISORDER [None]
  - POLLAKIURIA [None]
  - PRURITUS [None]
  - PULMONARY GRANULOMA [None]
  - PYREXIA [None]
  - RECTAL PROLAPSE REPAIR [None]
  - RECTOCELE [None]
  - RED BLOOD CELL SPHEROCYTES PRESENT [None]
  - RENAL FAILURE [None]
  - SPUTUM DISCOLOURED [None]
  - TACHYCARDIA [None]
  - TINNITUS [None]
  - TRANSIENT ISCHAEMIC ATTACK [None]
  - UPPER RESPIRATORY TRACT INFECTION [None]
  - URINARY INCONTINENCE [None]
  - VIRAL INFECTION [None]
  - VISION BLURRED [None]
  - VISUAL DISTURBANCE [None]
  - VON WILLEBRAND'S FACTOR MULTIMERS ABNORMAL [None]
  - WEIGHT DECREASED [None]
  - WEIGHT INCREASED [None]
